FAERS Safety Report 6079921-2 (Version None)
Quarter: 2009Q1

REPORT INFORMATION
  Report Type: 
  Country: None (occurrence: None)
  Receive Date: 20090217
  Receipt Date: 20090210
  Transmission Date: 20090719
  Serious: Yes (Hospitalization, Other)
  Sender: FDA-Public Use
  Company Number: US-AVENTIS-200818469US

PATIENT
  Sex: Female
  Weight: 108.9 kg

DRUGS (5)
  1. LOVENOX [Suspect]
     Indication: EXTRACORPOREAL CIRCULATION
     Dosage: DOSE: UNK
     Dates: start: 20081125, end: 20081206
  2. LOVENOX [Suspect]
     Indication: THROMBOSIS PROPHYLAXIS
     Dosage: DOSE: UNK
     Dates: start: 20081125, end: 20081206
  3. COUMADIN [Suspect]
     Dosage: DOSE: UNK
     Dates: end: 20081206
  4. CARDIOVASCULAR SYSTEM DRUGS [Concomitant]
     Dosage: DOSE: UNK
  5. UNKNOWN DRUG [Concomitant]
     Dosage: DOSE: UNK

REACTIONS (5)
  - DEPRESSED LEVEL OF CONSCIOUSNESS [None]
  - EYE ROLLING [None]
  - HYPOTENSION [None]
  - INJECTION SITE HAEMATOMA [None]
  - INJECTION SITE MASS [None]
